FAERS Safety Report 25680407 (Version 2)
Quarter: 2025Q3

REPORT INFORMATION
  Report Type: Spontaneous
  Country: JP (occurrence: JP)
  Receive Date: 20250814
  Receipt Date: 20250904
  Transmission Date: 20251020
  Serious: Yes (Other)
  Sender: UNITED THERAPEUTICS
  Company Number: JP-UNITED THERAPEUTICS-UNT-2025-019371

PATIENT
  Age: 79 Year
  Sex: Male

DRUGS (2)
  1. TREPROSTINIL [Suspect]
     Active Substance: TREPROSTINIL
     Indication: Pulmonary hypertension
     Dosage: 18 ?G, QID
     Dates: end: 20250531
  2. TREPROSTINIL [Suspect]
     Active Substance: TREPROSTINIL
     Indication: Combined pulmonary fibrosis and emphysema
     Dosage: 18 ?G, QID
     Dates: start: 20250602, end: 20250806

REACTIONS (5)
  - Interstitial lung disease [Not Recovered/Not Resolved]
  - Combined pulmonary fibrosis and emphysema [Unknown]
  - Hypoxia [Unknown]
  - Condition aggravated [Unknown]
  - Cough [Not Recovered/Not Resolved]

NARRATIVE: CASE EVENT DATE: 20250531
